FAERS Safety Report 7960698-8 (Version None)
Quarter: 2011Q4

REPORT INFORMATION
  Report Type: 
  Country: None (occurrence: None)
  Receive Date: 20111206
  Receipt Date: 20111130
  Transmission Date: 20120403
  Serious: Yes (Death, Hospitalization, Other)
  Sender: FDA-Public Use
  Company Number: JP-CELGENEUS-087-21880-11060984

PATIENT
  Sex: Male

DRUGS (28)
  1. REVLIMID [Suspect]
     Indication: ACUTE MYELOID LEUKAEMIA
     Dosage: 10 MILLIGRAM
     Route: 048
     Dates: start: 20101015, end: 20101104
  2. LASIX [Concomitant]
     Indication: CARDIAC FAILURE
     Dosage: 40 MILLIGRAM
     Route: 048
     Dates: start: 20090901
  3. LANSOPRAZOLE [Concomitant]
     Dosage: 15 MILLIGRAM
     Route: 048
     Dates: start: 20091101
  4. HUMULIN R [Concomitant]
     Indication: DIABETES MELLITUS
     Dosage: 12-30U
     Route: 058
     Dates: start: 20101014
  5. HUMULIN N [Concomitant]
     Indication: DIABETES MELLITUS
     Dosage: 5-10U
     Route: 058
     Dates: start: 20101014
  6. REVLIMID [Suspect]
     Dosage: 10 MILLIGRAM
     Route: 048
     Dates: start: 20101112, end: 20101130
  7. DIART [Concomitant]
     Indication: CARDIAC FAILURE
     Dosage: 60 MILLIGRAM
     Route: 048
     Dates: start: 20091112
  8. MUCOSTA [Concomitant]
     Indication: PROPHYLAXIS
     Dosage: 300 MILLIGRAM
     Route: 048
  9. HYDREA [Concomitant]
     Indication: ACUTE MYELOID LEUKAEMIA
     Dosage: 1000 MILLIGRAM
     Route: 048
     Dates: start: 20101112, end: 20101130
  10. OXYCONTIN [Concomitant]
     Dosage: 20 MILLIGRAM
     Route: 048
     Dates: start: 20101109, end: 20101129
  11. LANIRAPID [Concomitant]
     Indication: CARDIAC FAILURE
     Dosage: .1 MILLIGRAM
     Route: 048
     Dates: start: 20091223
  12. FUROSEMIDE [Concomitant]
     Dosage: 20 MILLIGRAM
     Route: 041
     Dates: start: 20101110, end: 20101110
  13. OXYCONTIN [Concomitant]
     Dosage: 10 MILLIGRAM
     Route: 048
     Dates: start: 20101023, end: 20101025
  14. OXYCONTIN [Concomitant]
     Dosage: 10 MILLIGRAM
     Route: 048
     Dates: start: 20101104, end: 20101108
  15. OXYCONTIN [Concomitant]
     Dosage: 10 MILLIGRAM
     Route: 048
     Dates: start: 20101015, end: 20101021
  16. OXYCONTIN [Concomitant]
     Dosage: 20 MILLIGRAM
     Route: 048
     Dates: start: 20101022, end: 20101022
  17. AMIODARONE HCL [Concomitant]
     Indication: CARDIAC FAILURE
     Dosage: 200 MILLIGRAM
     Route: 048
     Dates: start: 20091105
  18. PIMOBENDAN [Concomitant]
     Indication: CARDIAC FAILURE
     Dosage: 5 MILLIGRAM
     Route: 048
  19. ALLOPURINOL [Concomitant]
     Indication: PROPHYLAXIS
     Dosage: 200 MILLIGRAM
     Route: 048
  20. CEFEPIME HYDROCHLORIDE [Concomitant]
     Indication: CARDIAC FAILURE
     Dosage: 3 GRAM
     Route: 041
     Dates: start: 20101017, end: 20101022
  21. MEROPENEM [Concomitant]
     Indication: CARDIAC FAILURE
     Dosage: 1.5 GRAM
     Route: 041
     Dates: start: 20101023, end: 20101111
  22. OXYCONTIN [Concomitant]
     Dosage: 10 MILLIGRAM
     Route: 048
     Dates: start: 20101130, end: 20101130
  23. TORSEMIDE [Concomitant]
     Indication: CARDIAC FAILURE
     Dosage: 4 MILLIGRAM
     Route: 048
     Dates: start: 20091124
  24. WARFARIN SODIUM [Concomitant]
     Indication: CARDIAC FAILURE
     Dosage: 2 MILLIGRAM
     Route: 048
     Dates: start: 20090901
  25. VANCOMYCIN [Concomitant]
     Indication: INFECTION
     Dosage: 1 GRAM
     Route: 041
     Dates: start: 20101108, end: 20101111
  26. OXYCONTIN [Concomitant]
     Dosage: 20 MILLIGRAM
     Route: 048
     Dates: start: 20101026, end: 20101103
  27. FUROSEMIDE [Concomitant]
     Dosage: 40 MILLIGRAM
     Route: 041
     Dates: start: 20101111, end: 20101129
  28. FUROSEMIDE [Concomitant]
     Dosage: 60 MILLIGRAM
     Route: 041
     Dates: start: 20101130, end: 20101130

REACTIONS (3)
  - INTERSTITIAL LUNG DISEASE [None]
  - CARDIAC FAILURE CONGESTIVE [None]
  - BLAST CELL COUNT INCREASED [None]
